FAERS Safety Report 10028537 (Version 2)
Quarter: 2014Q1

REPORT INFORMATION
  Report Type: Spontaneous
  Country: US (occurrence: US)
  Receive Date: 20140321
  Receipt Date: 20140324
  Transmission Date: 20141002
  Serious: No
  Sender: FDA-Public Use
  Company Number: US-PFIZER INC-2014081130

PATIENT
  Sex: 0

DRUGS (7)
  1. ADVIL MIGRAINE [Suspect]
     Dosage: UNK
  2. ADVIL [Suspect]
     Dosage: UNK
  3. ALEVE [Suspect]
     Dosage: UNK
  4. NUPRIN [Suspect]
     Dosage: UNK
  5. MOTRIN IB [Suspect]
     Dosage: UNK
  6. EQUATE EXTRA STRENGTH PAIN RELIEVER [Suspect]
     Dosage: UNK
  7. MOTRIN MIGRAINE PAIN [Suspect]
     Dosage: UNK

REACTIONS (1)
  - Drug effect decreased [Unknown]
